FAERS Safety Report 8515099-0 (Version None)
Quarter: 2012Q3

REPORT INFORMATION
  Report Type: 
  Country: None (occurrence: None)
  Receive Date: 20120705
  Receipt Date: 20120621
  Transmission Date: 20120928
  Serious: Yes (Death, Hospitalization, Disabling)
  Sender: FDA-Public Use
  Company Number: HGS1006-SL-02261

PATIENT
  Age: 72 Year
  Sex: Male
  Weight: 65.5 kg

DRUGS (11)
  1. ACETYLSALICYLIC ACID (ACETYSALICYLIC ACID) (ACETYLSALICYLIC ACID) [Concomitant]
  2. LEXAPRO (ESCITALOPRAM OXALATE) (ESCITALOPRAM OXALATE) [Concomitant]
  3. HYDROXYCHLOROQUINE SULFATE [Concomitant]
  4. MULTIVITAMINS (MULTIVITAMINS) (ERGOCALCIFEROL, ASCORBIC ACID, FOLIC AC [Concomitant]
  5. CALCIUM CARBONATE [Concomitant]
  6. SILODOSIN (SILODOSIN) (SILODOSIN) [Concomitant]
  7. IBUPROFEN TABLETS [Concomitant]
  8. ALPRAZOLAM [Concomitant]
  9. LYMPHOSTAT-B [Suspect]
     Indication: SYSTEMIC LUPUS ERYTHEMATOSUS
     Dosage: SEE IMAGE
     Dates: start: 20051208
  10. LYMPHOSTAT-B [Suspect]
     Indication: SYSTEMIC LUPUS ERYTHEMATOSUS
     Dosage: SEE IMAGE
     Dates: start: 20040524, end: 20050523
  11. LYMPHOSTAT-B [Suspect]
     Indication: SYSTEMIC LUPUS ERYTHEMATOSUS
     Dosage: SEE IMAGE
     Dates: start: 20050623, end: 20051107

REACTIONS (45)
  - BLOOD UREA INCREASED [None]
  - LUNG INFECTION [None]
  - ELECTROCARDIOGRAM ST-T SEGMENT ABNORMAL [None]
  - PROCALCITONIN INCREASED [None]
  - INJURY [None]
  - BLOOD ALKALINE PHOSPHATASE INCREASED [None]
  - ALANINE AMINOTRANSFERASE INCREASED [None]
  - INTERVERTEBRAL DISC PROTRUSION [None]
  - MITRAL VALVE CALCIFICATION [None]
  - MITRAL VALVE INCOMPETENCE [None]
  - EXTRADURAL ABSCESS [None]
  - PNEUMONIA ASPIRATION [None]
  - SKELETAL INJURY [None]
  - INTERVERTEBRAL DISCITIS [None]
  - DEEP VEIN THROMBOSIS [None]
  - HAEMATOCRIT DECREASED [None]
  - BLOOD CREATINE PHOSPHOKINASE MB INCREASED [None]
  - EXTRADURAL HAEMATOMA [None]
  - SPINAL CORD COMPRESSION [None]
  - TOE AMPUTATION [None]
  - ATRIAL FLUTTER [None]
  - CARDIO-RESPIRATORY ARREST [None]
  - ASPARTATE AMINOTRANSFERASE INCREASED [None]
  - BACTERIAL TEST POSITIVE [None]
  - INTERNATIONAL NORMALISED RATIO INCREASED [None]
  - OSTEOMYELITIS [None]
  - PLATELET COUNT INCREASED [None]
  - WHITE BLOOD CELLS URINE POSITIVE [None]
  - BLOOD URINE PRESENT [None]
  - URINE LEUKOCYTE ESTERASE POSITIVE [None]
  - AORTIC VALVE CALCIFICATION [None]
  - ACTIVATED PARTIAL THROMBOPLASTIN TIME PROLONGED [None]
  - CARBON DIOXIDE DECREASED [None]
  - BLOOD CALCIUM DECREASED [None]
  - PROTEIN TOTAL DECREASED [None]
  - BLOOD ALBUMIN DECREASED [None]
  - BLOOD POTASSIUM INCREASED [None]
  - BLOOD CHLORIDE INCREASED [None]
  - BLOOD CREATININE INCREASED [None]
  - RESPIRATORY FAILURE [None]
  - FALL [None]
  - ATELECTASIS [None]
  - HAEMOGLOBIN DECREASED [None]
  - DYSPHAGIA [None]
  - BLOOD GLUCOSE DECREASED [None]
